FAERS Safety Report 6196472-5 (Version None)
Quarter: 2009Q2

REPORT INFORMATION
  Report Type: 
  Country: None (occurrence: None)
  Receive Date: 20090520
  Receipt Date: 20090515
  Transmission Date: 20091009
  Serious: Yes (Other)
  Sender: FDA-Public Use
  Company Number: US-JNJFOC-20090503951

PATIENT
  Sex: Female
  Weight: 61.69 kg

DRUGS (7)
  1. FENTANYL TRANSDERMAL SYSTEM [Suspect]
     Indication: BACK PAIN
     Route: 062
  2. FENTANYL TRANSDERMAL SYSTEM [Suspect]
     Indication: NECK PAIN
     Route: 062
  3. AMBIEN CR [Concomitant]
     Indication: SLEEP DISORDER THERAPY
     Route: 048
  4. LYRICA [Concomitant]
     Indication: NEUROPATHY PERIPHERAL
     Route: 048
  5. LYRICA [Concomitant]
     Indication: FIBROMYALGIA
     Route: 048
  6. OXYCODONE HCL [Concomitant]
     Indication: PAIN
     Route: 048
  7. FLEXERIL [Concomitant]
     Indication: MUSCLE SPASMS
     Route: 048

REACTIONS (10)
  - ANOREXIA [None]
  - DRUG ADMINISTERED AT INAPPROPRIATE SITE [None]
  - DRUG DOSE OMISSION [None]
  - FATIGUE [None]
  - HYPERSOMNIA [None]
  - MUSCLE SPASMS [None]
  - NERVOUSNESS [None]
  - RETCHING [None]
  - VOMITING [None]
  - WEIGHT DECREASED [None]
